FAERS Safety Report 6764877-7 (Version None)
Quarter: 2010Q2

REPORT INFORMATION
  Report Type: 
  Country: None (occurrence: None)
  Receive Date: 20100610
  Receipt Date: 20100531
  Transmission Date: 20101027
  Serious: Yes (Hospitalization)
  Sender: FDA-Public Use
  Company Number: SK-ELI_LILLY_AND_COMPANY-SK201006000579

PATIENT
  Sex: Male

DRUGS (7)
  1. PEMETREXED [Suspect]
     Indication: ADENOCARCINOMA
     Dosage: 900 MG, EVERY 3 WEEKS
     Route: 042
     Dates: start: 20100508, end: 20100511
  2. ALLOPURINOL [Concomitant]
     Dosage: 100 MG, DAILY (1/D)
     Route: 048
  3. IBUPROFEN [Concomitant]
  4. CODEINE SUL TAB [Concomitant]
  5. FOLIC ACID [Concomitant]
  6. METHYLPREDNISOLONE [Concomitant]
     Dates: start: 20100501
  7. VITAMIN B-12 [Concomitant]

REACTIONS (9)
  - ANAEMIA [None]
  - C-REACTIVE PROTEIN INCREASED [None]
  - CARDIAC FAILURE [None]
  - CHILLS [None]
  - DECREASED APPETITE [None]
  - ERYTHEMA [None]
  - RASH PRURITIC [None]
  - SKIN DISCOLOURATION [None]
  - STOMATITIS [None]
